FAERS Safety Report 21908579 (Version 1)
Quarter: 2023Q1

REPORT INFORMATION
  Report Type: Spontaneous
  Country: IT (occurrence: IT)
  Receive Date: 20230125
  Receipt Date: 20230125
  Transmission Date: 20230418
  Serious: Yes (Other)
  Sender: FDA-Public Use
  Company Number: IT-PFIZER INC-PV202300014036

PATIENT
  Age: 58 Year
  Sex: Male

DRUGS (1)
  1. PEGVISOMANT [Suspect]
     Active Substance: PEGVISOMANT
     Dosage: UNK
     Dates: start: 2023

REACTIONS (4)
  - Acromegaly [Unknown]
  - Retinopathy hypertensive [Unknown]
  - Hypertension [Unknown]
  - Insulin-like growth factor abnormal [Unknown]
